FAERS Safety Report 24643081 (Version 1)
Quarter: 2024Q4

REPORT INFORMATION
  Report Type: Spontaneous
  Country: CA (occurrence: CA)
  Receive Date: 20241120
  Receipt Date: 20241120
  Transmission Date: 20250114
  Serious: Yes (Other)
  Sender: FRESENIUS KABI
  Company Number: CA-FreseniusKabi-FK202416933

PATIENT
  Age: 68 Year
  Sex: Male

DRUGS (6)
  1. HYDROMORPHONE HYDROCHLORIDE [Suspect]
     Active Substance: HYDROMORPHONE HYDROCHLORIDE
     Indication: Pain
     Dosage: ROUTE OF ADMIN: UNKNOWN
  2. HYDROMORPHONE HYDROCHLORIDE [Suspect]
     Active Substance: HYDROMORPHONE HYDROCHLORIDE
     Dosage: ROUTE OF ADMIN: UNKNOWN
  3. CIBINQO [Concomitant]
     Active Substance: ABROCITINIB
     Indication: Dermatitis atopic
     Dosage: FORM OF ADMIN.: TABLET
     Route: 048
  4. CIBINQO [Concomitant]
     Active Substance: ABROCITINIB
     Route: 048
  5. COSENTYX [Concomitant]
     Active Substance: SECUKINUMAB
     Indication: Product used for unknown indication
  6. PREGABALIN [Concomitant]
     Active Substance: PREGABALIN
     Indication: Product used for unknown indication
     Dosage: FORM OF ADMIN.: CAPSULES

REACTIONS (1)
  - Delirium [Unknown]
